FAERS Safety Report 7719156-8 (Version None)
Quarter: 2011Q3

REPORT INFORMATION
  Report Type: 
  Country: None (occurrence: None)
  Receive Date: 20110830
  Receipt Date: 20110824
  Transmission Date: 20111222
  Serious: Yes (Other)
  Sender: FDA-Public Use
  Company Number: BR-SANOFI-AVENTIS-2011SA035711

PATIENT
  Sex: Female

DRUGS (3)
  1. SOLOSTAR [Suspect]
  2. LANTUS [Suspect]
     Route: 058
  3. AUTOPEN 24 [Concomitant]

REACTIONS (4)
  - BLOOD GLUCOSE INCREASED [None]
  - NERVOUSNESS [None]
  - INFARCTION [None]
  - DEVICE MALFUNCTION [None]
